FAERS Safety Report 5992668-3 (Version None)
Quarter: 2008Q4

REPORT INFORMATION
  Report Type: 
  Country: None (occurrence: None)
  Receive Date: 20081211
  Receipt Date: 20081208
  Transmission Date: 20090506
  Serious: Yes (Other)
  Sender: FDA-Public Use
  Company Number: GB-JNJCH-2008056828

PATIENT
  Age: 2 Year
  Sex: Female

DRUGS (1)
  1. CALPOL INFANT SUSPENSION [Suspect]
     Indication: DRUG USE FOR UNKNOWN INDICATION
     Dosage: TEXT:UNSPECIFIED
     Route: 048

REACTIONS (2)
  - COELIAC DISEASE [None]
  - MALAISE [None]
